FAERS Safety Report 7205868-1 (Version None)
Quarter: 2010Q4

REPORT INFORMATION
  Report Type: 
  Country: None (occurrence: None)
  Receive Date: 20101231
  Receipt Date: 20101217
  Transmission Date: 20110411
  Serious: Yes (Death, Other)
  Sender: FDA-Public Use
  Company Number: US-CELGENEUS-163-21880-10101407

PATIENT
  Sex: Female

DRUGS (4)
  1. REVLIMID [Suspect]
     Route: 048
     Dates: start: 20060501
  2. REVLIMID [Suspect]
     Route: 048
     Dates: start: 20070301
  3. REVLIMID [Suspect]
     Route: 048
     Dates: start: 20071201
  4. REVLIMID [Suspect]
     Route: 048
     Dates: start: 20100801, end: 20101011

REACTIONS (1)
  - COLON CANCER METASTATIC [None]
